FAERS Safety Report 21886310 (Version 2)
Quarter: 2023Q4

REPORT INFORMATION
  Report Type: Other
  Country: CA (occurrence: CA)
  Receive Date: 20230119
  Receipt Date: 20231003
  Transmission Date: 20240110
  Serious: Yes (Other)
  Sender: FDA-Public Use
  Company Number: CA-PFIZER INC-202300021773

PATIENT
  Age: 58 Year
  Sex: Female

DRUGS (14)
  1. MIDAZOLAM [Suspect]
     Active Substance: MIDAZOLAM
     Indication: Status epilepticus
     Route: 065
  2. METHYLPREDNISOLONE SODIUM SUCCINATE [Suspect]
     Active Substance: METHYLPREDNISOLONE SODIUM SUCCINATE
     Indication: Status epilepticus
     Dosage: 4 G
     Route: 042
  3. KETAMINE [Suspect]
     Active Substance: KETAMINE
     Indication: Status epilepticus
     Route: 065
  4. LEVETIRACETAM [Suspect]
     Active Substance: LEVETIRACETAM
     Indication: Status epilepticus
     Route: 065
  5. PHENOBARBITAL [Suspect]
     Active Substance: PHENOBARBITAL
     Indication: Status epilepticus
     Dosage: 150 MG, 2X/DAY
  6. PHENYTOIN [Suspect]
     Active Substance: PHENYTOIN
     Indication: Status epilepticus
     Route: 065
  7. PHENYTOIN [Suspect]
     Active Substance: PHENYTOIN
     Indication: Seizure
  8. PROPOFOL [Suspect]
     Active Substance: PROPOFOL
     Indication: Status epilepticus
     Dosage: UNK UNK, 2X/DAY
     Route: 065
  9. PROPOFOL [Suspect]
     Active Substance: PROPOFOL
     Dosage: 150.0 MG, 2 EVERY 1 DAYS
     Route: 042
  10. VALPROIC ACID [Suspect]
     Active Substance: VALPROIC ACID
     Indication: Status epilepticus
     Route: 065
  11. ISOFLURANE [Suspect]
     Active Substance: ISOFLURANE
     Indication: Appendicitis
  12. KETAMINE HYDROCHLORIDE [Suspect]
     Active Substance: KETAMINE HYDROCHLORIDE
     Indication: Status epilepticus
     Route: 065
  13. LEVETIRACETAM [Suspect]
     Active Substance: LEVETIRACETAM
     Indication: Status epilepticus
     Route: 065
  14. PIPERACILLIN SODIUM\TAZOBACTAM SODIUM [Concomitant]
     Active Substance: PIPERACILLIN SODIUM\TAZOBACTAM SODIUM
     Indication: Appendicitis
     Route: 065

REACTIONS (8)
  - Hypertrophic cardiomyopathy [Unknown]
  - Intestinal perforation [Unknown]
  - Necrosis ischaemic [Unknown]
  - Systemic inflammatory response syndrome [Unknown]
  - Intra-abdominal pressure increased [Unknown]
  - Abdominal distension [Unknown]
  - Vomiting [Unknown]
  - Off label use [Unknown]
